FAERS Safety Report 7813163-2 (Version None)
Quarter: 2011Q4

REPORT INFORMATION
  Report Type: 
  Country: None (occurrence: None)
  Receive Date: 20111013
  Receipt Date: 20110929
  Transmission Date: 20120403
  Serious: Yes (Other)
  Sender: FDA-Public Use
  Company Number: US-BAYER-2011-094880

PATIENT
  Age: 83 Year
  Sex: Female

DRUGS (2)
  1. ALKA-SELTZER ORIGINAL [Suspect]
     Indication: URINARY TRACT INFECTION
     Dosage: 1 DF, PRN, BOTTLE COUNT 12S
     Route: 048
  2. VITAMIN TAB [Concomitant]

REACTIONS (1)
  - URINARY TRACT INFECTION [None]
